FAERS Safety Report 11546368 (Version 2)
Quarter: 2016Q2

REPORT INFORMATION
  Report Type: Spontaneous
  Country: AU (occurrence: AU)
  Receive Date: 20150924
  Receipt Date: 20160607
  Transmission Date: 20160815
  Serious: Yes (Other)
  Sender: FDA-Public Use
  Company Number: AU-RECKITT BENCKISER HEALTHCARE INT LIMITED-RB-07729-2015

PATIENT
  Sex: Female

DRUGS (1)
  1. UNSPECIFIED DETTOL [Suspect]
     Active Substance: CHLOROXYLENOL\TRICLOSAN
     Indication: WOUND
     Dosage: UNK
     Route: 065

REACTIONS (3)
  - Pain [Unknown]
  - Burns third degree [Unknown]
  - Discomfort [Unknown]
